FAERS Safety Report 5512009-5 (Version None)
Quarter: 2007Q4

REPORT INFORMATION
  Report Type: 
  Country: None (occurrence: None)
  Receive Date: 20071109
  Receipt Date: 20071029
  Transmission Date: 20080405
  Serious: Yes (Other)
  Sender: FDA-Public Use
  Company Number: PR-PFIZER INC-2007092992

PATIENT

DRUGS (1)
  1. AMLODIPINE [Suspect]

REACTIONS (2)
  - ANGIOEDEMA [None]
  - STEVENS-JOHNSON SYNDROME [None]
